FAERS Safety Report 24773526 (Version 2)
Quarter: 2025Q1

REPORT INFORMATION
  Report Type: Spontaneous
  Country: FR (occurrence: FR)
  Receive Date: 20241225
  Receipt Date: 20250110
  Transmission Date: 20250409
  Serious: Yes (Other)
  Sender: ALEXION PHARMACEUTICALS
  Company Number: FR-SA-2024SA379365

PATIENT
  Age: 5 Month
  Weight: 6.8 kg

DRUGS (4)
  1. BEYFORTUS [Suspect]
     Active Substance: NIRSEVIMAB-ALIP
     Indication: Prophylaxis
     Dosage: 50 MILLIGRAM, QD
  2. BEYFORTUS [Suspect]
     Active Substance: NIRSEVIMAB-ALIP
     Dosage: 50 MILLIGRAM, QD
     Route: 030
  3. BEYFORTUS [Suspect]
     Active Substance: NIRSEVIMAB-ALIP
     Dosage: 50 MILLIGRAM, QD
  4. BEYFORTUS [Suspect]
     Active Substance: NIRSEVIMAB-ALIP
     Dosage: 50 MILLIGRAM, QD
     Route: 030

REACTIONS (3)
  - Respiratory syncytial virus bronchiolitis [Unknown]
  - Wheezing [Unknown]
  - Respiratory distress [Unknown]
